FAERS Safety Report 6854962-3 (Version None)
Quarter: 2010Q3

REPORT INFORMATION
  Report Type: 
  Country: None (occurrence: None)
  Receive Date: 20100717
  Receipt Date: 20080314
  Transmission Date: 20110219
  Serious: Yes (Other)
  Sender: FDA-Public Use
  Company Number: US-PFIZER INC-2007103579

PATIENT
  Sex: Male
  Weight: 88.181 kg

DRUGS (6)
  1. CHANTIX [Suspect]
     Indication: SMOKING CESSATION THERAPY
     Dates: start: 20071106
  2. ATENOLOL [Concomitant]
     Indication: HYPERTENSION
  3. LISINOPRIL [Concomitant]
     Indication: HYPERTENSION
  4. PROTONIX [Concomitant]
     Indication: GASTRIC DISORDER
  5. ALEVE (CAPLET) [Concomitant]
  6. MOMETASONE FUROATE [Concomitant]
     Route: 045

REACTIONS (1)
  - HYPERTENSION [None]
